FAERS Safety Report 21508476 (Version 1)
Quarter: 2022Q4

REPORT INFORMATION
  Report Type: Spontaneous
  Country: FR (occurrence: FR)
  Receive Date: 20221026
  Receipt Date: 20221026
  Transmission Date: 20230113
  Serious: Yes (Hospitalization, Other)
  Sender: FDA-Public Use
  Company Number: FR-ARBOR PHARMACEUTICALS, LLC-FR-2022ARB002675

PATIENT
  Age: 76 Year
  Sex: Male

DRUGS (4)
  1. TRIPTODUR [Suspect]
     Active Substance: TRIPTORELIN
     Indication: Prostate cancer
     Dosage: STRENGTH: NOT REPORTED (1 DOSAGE FORMS,1 WK)
     Route: 030
     Dates: start: 20210920
  2. TRIPTODUR [Suspect]
     Active Substance: TRIPTORELIN
  3. TRIPTODUR [Suspect]
     Active Substance: TRIPTORELIN
  4. SPIKEVAX [Suspect]
     Active Substance: ELASOMERAN
     Indication: COVID-19 immunisation
     Dosage: INJECTABLE DISPERSION. MRNA (NUCLEOSIDE MODIFIED) VACCINE AGAINST COVID-19  (1 DOSAGE FORMS)
     Route: 030
     Dates: start: 20220421

REACTIONS (5)
  - Allodynia [Recovering/Resolving]
  - Intestinal obstruction [Recovering/Resolving]
  - Retinal vein thrombosis [Recovering/Resolving]
  - Arthralgia [Recovering/Resolving]
  - Myalgia [Recovering/Resolving]

NARRATIVE: CASE EVENT DATE: 20211120
